FAERS Safety Report 21775555 (Version 1)
Quarter: 2022Q4

REPORT INFORMATION
  Report Type: Spontaneous
  Country: US (occurrence: US)
  Receive Date: 20221226
  Receipt Date: 20221226
  Transmission Date: 20230113
  Serious: No
  Sender: FDA-Public Use
  Company Number: US-BRISTOL-MYERS SQUIBB COMPANY-2022-158231

PATIENT
  Age: 79 Year
  Sex: Male
  Weight: 75 kg

DRUGS (1)
  1. ELIQUIS [Suspect]
     Active Substance: APIXABAN
     Indication: Deep vein thrombosis
     Route: 048
     Dates: start: 202210, end: 202212

REACTIONS (4)
  - Sleep disorder [Recovering/Resolving]
  - Musculoskeletal stiffness [Unknown]
  - Pollakiuria [Unknown]
  - Mobility decreased [Unknown]

NARRATIVE: CASE EVENT DATE: 20221221
